FAERS Safety Report 8085488-X (Version None)
Quarter: 2012Q1

REPORT INFORMATION
  Report Type: 
  Country: None (occurrence: None)
  Receive Date: 20120128
  Receipt Date: 20110521
  Transmission Date: 20120608
  Serious: No
  Sender: FDA-Public Use
  Company Number: US-ABBOTT-11P-163-0709687-00

PATIENT
  Age: 52 Year
  Sex: Female

DRUGS (6)
  1. SIMVASTATIN [Concomitant]
     Indication: BLOOD CHOLESTEROL
     Dosage: 20MG AT HS
  2. ACETAMINOPHEN [Suspect]
     Indication: PRODUCT USED FOR UNKNOWN INDICATION
  3. IBUPROFEN [Concomitant]
     Indication: PAIN
     Dosage: PRN
  4. HUMIRA [Suspect]
     Indication: PSORIASIS
     Dates: start: 20110117
  5. ALCOHOL [Suspect]
     Indication: PRODUCT USED FOR UNKNOWN INDICATION
  6. HYDROCHLOROTHIAZIDE [Concomitant]
     Indication: HYPERTENSION

REACTIONS (6)
  - INJECTION SITE PAIN [None]
  - BACK PAIN [None]
  - HEPATIC ENZYME INCREASED [None]
  - MEDICAL DEVICE PAIN [None]
  - CARDIAC FAILURE CONGESTIVE [None]
  - URINARY INCONTINENCE [None]
